FAERS Safety Report 20725268 (Version 2)
Quarter: 2022Q2

REPORT INFORMATION
  Report Type: Spontaneous
  Country: BG (occurrence: None)
  Receive Date: 20220419
  Receipt Date: 20220422
  Transmission Date: 20220721
  Serious: Yes (Disabling, Other)
  Sender: FDA-Public Use
  Company Number: 2022A148001

PATIENT
  Age: 11047 Day
  Sex: Male

DRUGS (13)
  1. DAPAGLIFLOZIN [Suspect]
     Active Substance: DAPAGLIFLOZIN
     Indication: Diabetes mellitus
     Route: 048
     Dates: start: 20220326, end: 20220326
  2. TICAGRELOR [Concomitant]
     Active Substance: TICAGRELOR
     Dosage: 2X1 TAB FOR 12 MONTHS
     Route: 065
  3. ASPIRIN [Concomitant]
     Active Substance: ASPIRIN
     Dosage: 100 MG /EVENING
     Route: 065
  4. BISOPROLOL [Concomitant]
     Active Substance: BISOPROLOL
     Route: 065
  5. IVABRADINE [Concomitant]
     Active Substance: IVABRADINE
     Dosage: 2X1 TAB
     Route: 065
  6. ZOFENOPRIL [Concomitant]
     Active Substance: ZOFENOPRIL
     Route: 065
  7. FUROSEMIDE [Concomitant]
     Active Substance: FUROSEMIDE
     Route: 065
  8. TORSEMIDE [Concomitant]
     Active Substance: TORSEMIDE
     Dosage: 1 TABLET AT LUNCH
     Route: 065
  9. EPLERENONE [Concomitant]
     Active Substance: EPLERENONE
     Route: 065
  10. COLCHICUM [Concomitant]
     Active Substance: COLCHICINE
     Dosage: 0,5 MG 2X1 TAB DAILY
     Route: 065
  11. LEVOTHYROXINE [Concomitant]
     Active Substance: LEVOTHYROXINE
     Dosage: 25 MKGR IN THE MORNING
     Route: 065
  12. INSULIN LYUMJEV [Concomitant]
     Dosage: 10E+10E+10E
     Route: 065
  13. TOUJEO [Concomitant]
     Active Substance: INSULIN GLARGINE
     Dosage: 30 E -AT 10 PM
     Route: 065

REACTIONS (5)
  - Hyperhidrosis [Unknown]
  - Dizziness [Unknown]
  - Blood glucose decreased [Unknown]
  - Blood pressure decreased [Unknown]
  - Off label use [Unknown]

NARRATIVE: CASE EVENT DATE: 20220326
